FAERS Safety Report 24433013 (Version 3)
Quarter: 2024Q4

REPORT INFORMATION
  Report Type: Report from Study
  Country: US (occurrence: US)
  Receive Date: 20241014
  Receipt Date: 20241107
  Transmission Date: 20250114
  Serious: Yes (Hospitalization, Other)
  Sender: MYLAN
  Company Number: US-MYLANLABS-2024M1092609

PATIENT
  Age: 74 Year
  Sex: Female
  Weight: 88.5 kg

DRUGS (3)
  1. AMLODIPINE [Suspect]
     Active Substance: AMLODIPINE BESYLATE
     Indication: Blood pressure abnormal
     Dosage: UNK
     Route: 065
  2. REVLIMID [Suspect]
     Active Substance: LENALIDOMIDE
     Indication: Plasma cell myeloma in remission
     Dosage: 5 MILLIGRAM, (21 EVERY 28 DAY)
     Route: 048
     Dates: start: 20220228
  3. ELIQUIS [Suspect]
     Active Substance: APIXABAN
     Indication: Product used for unknown indication
     Dosage: UNK
     Route: 065

REACTIONS (14)
  - Full blood count abnormal [Unknown]
  - Atrial fibrillation [Unknown]
  - Cataract [Unknown]
  - Retinal haemorrhage [Unknown]
  - Vitreous floaters [Unknown]
  - Eye irritation [Unknown]
  - Eye infection [Unknown]
  - Dry eye [Unknown]
  - Neutrophil count decreased [Unknown]
  - White blood cell count decreased [Unknown]
  - Somnolence [Unknown]
  - Weight decreased [Recovering/Resolving]
  - Fatigue [Unknown]
  - Weight increased [Unknown]

NARRATIVE: CASE EVENT DATE: 20220101
